FAERS Safety Report 23652741 (Version 1)
Quarter: 2024Q1

REPORT INFORMATION
  Report Type: Spontaneous
  Country: JP (occurrence: JP)
  Receive Date: 20240320
  Receipt Date: 20240320
  Transmission Date: 20240409
  Serious: Yes (Death)
  Sender: FDA-Public Use
  Company Number: JP-HORIZON THERAPEUTICS-HZN-2024-003337

PATIENT

DRUGS (1)
  1. UPLIZNA [Suspect]
     Active Substance: INEBILIZUMAB-CDON
     Indication: Neuromyelitis optica spectrum disorder
     Dosage: 300 MG, QD (100 MG FOR INTRAVENOUS INFUSION)
     Route: 041
     Dates: start: 20240216, end: 20240301

REACTIONS (1)
  - Mechanical ileus [Fatal]

NARRATIVE: CASE EVENT DATE: 20240315
